FAERS Safety Report 4622108-8 (Version None)
Quarter: 2005Q1

REPORT INFORMATION
  Report Type: 
  Country: None (occurrence: None)
  Receive Date: 20050329
  Receipt Date: 20050317
  Transmission Date: 20050727
  Serious: Yes (Hospitalization, Other)
  Sender: FDA-Public Use
  Company Number: 2005042016

PATIENT
  Sex: Female
  Weight: 90.7194 kg

DRUGS (7)
  1. DILANTIN [Suspect]
     Indication: EPILEPSY
     Dosage: 300 MG (100 MG, 1 IN 1 D), ORAL
     Route: 048
  2. ALBUTEROL SULFATE HFA [Concomitant]
  3. FLUTICASONE PROPIONATE [Concomitant]
  4. HERBAL PREPARATIN (HERBAL PREPARATION) [Concomitant]
  5. ANTIOXIDANTS (ANTIOXIDANTS) [Concomitant]
  6. SILYMARIN (SILYMARIN) [Concomitant]
  7. CALCIUM (CALCIUM) [Concomitant]

REACTIONS (8)
  - ALANINE AMINOTRANSFERASE INCREASED [None]
  - CONVULSION [None]
  - DIZZINESS [None]
  - DRUG LEVEL DECREASED [None]
  - DRUG TOXICITY [None]
  - FEELING ABNORMAL [None]
  - HEADACHE [None]
  - PETIT MAL EPILEPSY [None]
